FAERS Safety Report 16178612 (Version 3)
Quarter: 2019Q2

REPORT INFORMATION
  Report Type: Spontaneous
  Country: CM (occurrence: CM)
  Receive Date: 20190410
  Receipt Date: 20190410
  Transmission Date: 20190711
  Serious: Yes (Disabling)
  Sender: FDA-Public Use
  Company Number: PHHY2019CM078859

PATIENT
  Age: 58 Year
  Sex: Female

DRUGS (1)
  1. DICLOFENAC [Suspect]
     Active Substance: DICLOFENAC
     Indication: ARTHRALGIA
     Dosage: (IN THE ANTERIOR FOREARM)
     Route: 030

REACTIONS (5)
  - Embolia cutis medicamentosa [Not Recovered/Not Resolved]
  - Peripheral ischaemia [Not Recovered/Not Resolved]
  - Necrosis [Unknown]
  - Injection site pain [Unknown]
  - Skin discolouration [Unknown]
